FAERS Safety Report 13246397 (Version 1)
Quarter: 2017Q1

REPORT INFORMATION
  Report Type: Spontaneous
  Country: US (occurrence: US)
  Receive Date: 20170217
  Receipt Date: 20170217
  Transmission Date: 20170428
  Serious: No
  Sender: FDA-Public Use
  Company Number: US-ASTRAZENECA-2017SE14485

PATIENT
  Sex: Male
  Weight: 98.9 kg

DRUGS (4)
  1. NEXIUM 24HR [Suspect]
     Active Substance: ESOMEPRAZOLE MAGNESIUM
  2. NEXIUM [Suspect]
     Active Substance: ESOMEPRAZOLE MAGNESIUM
     Indication: GASTROOESOPHAGEAL REFLUX DISEASE
     Dosage: GENERIC ESOMEPRA MAG - MYLAN
     Route: 048
     Dates: start: 201506
  3. DOMPERIDONE [Concomitant]
     Active Substance: DOMPERIDONE
     Indication: GASTROINTESTINAL DISORDER
     Dosage: 5.0MG UNKNOWN
     Route: 065
  4. NEXIUM [Suspect]
     Active Substance: ESOMEPRAZOLE MAGNESIUM
     Indication: GASTROOESOPHAGEAL REFLUX DISEASE
     Dosage: ESOMEPRA MAG - MYLAN
     Route: 048

REACTIONS (4)
  - Adverse drug reaction [Unknown]
  - Abdominal distension [Unknown]
  - Dry mouth [Unknown]
  - Drug dose omission [Unknown]
